FAERS Safety Report 5128011-1 (Version None)
Quarter: 2006Q4

REPORT INFORMATION
  Report Type: 
  Country: None (occurrence: None)
  Receive Date: 20061016
  Receipt Date: 20061009
  Transmission Date: 20070319
  Serious: Yes (Hospitalization)
  Sender: FDA-Public Use
  Company Number: US-SANOFI-SYNTHELABO-F01200602092

PATIENT
  Sex: Male

DRUGS (4)
  1. BEVACIZUMAB [Suspect]
     Route: 042
     Dates: start: 20060822, end: 20060822
  2. LEUCOVORIN CALCIUM [Suspect]
     Dosage: 400 MG/M2 GIVEN ON DAY 1 OF EACH TWO-WEEK CYCLE
     Route: 042
     Dates: start: 20060822, end: 20060822
  3. FLUOROURACIL [Suspect]
     Dosage: 400 MG/M2 IV BOLUS ON DAY 1 AND 2400 MG/M2  CONTINUOUS INFUSION, OVER 46 HOURS, D1-2, Q2W
     Route: 042
     Dates: start: 20060822, end: 20060823
  4. OXALIPLATIN [Suspect]
     Indication: COLON CANCER
     Dosage: 85 MG/M2 GIVEN ON DAY 1 OF EACH TWO-WEEK CYCLE
     Route: 042
     Dates: start: 20060822, end: 20060822

REACTIONS (2)
  - PULMONARY EMBOLISM [None]
  - THROMBOSIS [None]
